FAERS Safety Report 23958481 (Version 1)
Quarter: 2024Q2

REPORT INFORMATION
  Report Type: Spontaneous
  Country: NL (occurrence: NL)
  Receive Date: 20240610
  Receipt Date: 20240610
  Transmission Date: 20240716
  Serious: Yes (Hospitalization)
  Sender: FDA-Public Use
  Company Number: None

PATIENT
  Age: 72 Year
  Sex: Male
  Weight: 81.7 kg

DRUGS (9)
  1. LACOSAMIDE [Suspect]
     Active Substance: LACOSAMIDE
     Indication: Epilepsy
     Dosage: 1 PIECE TWICE A DAY, BRAND NAME NOT SPECIFIED
     Route: 065
     Dates: start: 20240308
  2. SOTALOL [Concomitant]
     Active Substance: SOTALOL
     Indication: Product used for unknown indication
     Dosage: TABLET, 40 MG (MILLIGRAM), BRAND NAME NOT SPECIFIED
     Route: 065
  3. PAROXETINE [Concomitant]
     Active Substance: PAROXETINE
     Indication: Product used for unknown indication
     Dosage: TABLET, 20 MG (MILLIGRAM), BRAND NAME NOT SPECIFIED
     Route: 065
  4. CLOBAZAM [Concomitant]
     Active Substance: CLOBAZAM
     Indication: Product used for unknown indication
     Dosage: TABLET, 10 MG (MILLIGRAM). BRAND NAME NOT SPECIFIED
     Route: 065
  5. TIOTROPIUM [Concomitant]
     Active Substance: TIOTROPIUM
     Indication: Product used for unknown indication
     Dosage: INHALATION CAPSULE 18UG / BRAND NAME NOT SPECIFIED
     Route: 065
  6. KEPPRA [Suspect]
     Active Substance: LEVETIRACETAM
     Indication: Epilepsy
     Dosage: 3 TABLETS 2X PER DAY, LEVETIRACETAM TABLET FO 500MG
     Route: 065
     Dates: start: 20240308
  7. VALPROATE SODIUM [Suspect]
     Active Substance: VALPROATE SODIUM
     Indication: Epilepsy
     Dosage: 2 TABLETS 2 TIMES A DAY, VALPROIC ACID TABLET MSR 500MG
     Route: 065
     Dates: start: 20240424, end: 20240514
  8. EDOXABAN [Concomitant]
     Active Substance: EDOXABAN
     Indication: Product used for unknown indication
     Dosage: TABLET, 60 MG (MILLIGRAM), BRAND NAME NOT SPECIFIED
     Route: 065
  9. BECLOMETHASONE\FORMOTEROL [Concomitant]
     Active Substance: BECLOMETHASONE\FORMOTEROL
     Indication: Product used for unknown indication
     Dosage: AEROSOL, 200/6 ?G/DOSE (MICROGRAMS PER DOSE),AEROSOL 200/6UG/DO / BRAND NAME NOT SPECIFIED
     Route: 065

REACTIONS (9)
  - Urinary incontinence [Recovering/Resolving]
  - Aphasia [Recovering/Resolving]
  - Erythema [Recovering/Resolving]
  - Disturbance in attention [Recovering/Resolving]
  - Cold sweat [Recovering/Resolving]
  - Depressed level of consciousness [Recovering/Resolving]
  - Fall [Recovering/Resolving]
  - Somnolence [Recovering/Resolving]
  - Catatonia [Recovering/Resolving]

NARRATIVE: CASE EVENT DATE: 20240501
